FAERS Safety Report 22143030 (Version 1)
Quarter: 2023Q1

REPORT INFORMATION
  Report Type: Report from Study
  Country: US (occurrence: US)
  Receive Date: 20230327
  Receipt Date: 20230327
  Transmission Date: 20230417
  Serious: No
  Sender: FDA-Public Use
  Company Number: US-BIOVITRUM-2023-US-005786

PATIENT
  Age: 51 Year
  Sex: Female

DRUGS (1)
  1. KINERET [Suspect]
     Active Substance: ANAKINRA
     Indication: Rheumatoid arthritis
     Route: 058
     Dates: start: 20230204

REACTIONS (10)
  - Hypersensitivity [Unknown]
  - Skin burning sensation [Unknown]
  - Urticaria [Unknown]
  - Swelling [Unknown]
  - Skin hypertrophy [Unknown]
  - Erythema [Not Recovered/Not Resolved]
  - Pruritus [Recovering/Resolving]
  - Abdominal fat apron [Unknown]
  - Scar [Unknown]
  - Feeling hot [Unknown]
